FAERS Safety Report 22531606 (Version 1)
Quarter: 2023Q2

REPORT INFORMATION
  Report Type: Spontaneous
  Country: CN (occurrence: CN)
  Receive Date: 20230607
  Receipt Date: 20230607
  Transmission Date: 20230721
  Serious: Yes (Other)
  Sender: FDA-Public Use
  Company Number: CN-Blueprint Medicines Corporation-LT-CN-2023-000906

PATIENT

DRUGS (2)
  1. AYVAKIT [Suspect]
     Active Substance: AVAPRITINIB
     Indication: Gastrointestinal stromal tumour
     Route: 065
     Dates: start: 20221103
  2. SUNITINIB [Suspect]
     Active Substance: SUNITINIB
     Indication: Gastrointestinal stromal tumour
     Route: 065
     Dates: start: 20221103

REACTIONS (9)
  - Oliguria [Unknown]
  - Liver injury [Unknown]
  - Anaemia [Unknown]
  - Tumour haemorrhage [Unknown]
  - Fatigue [Unknown]
  - Vomiting [Unknown]
  - Pallor [Unknown]
  - Purpura [Unknown]
  - Disease progression [Unknown]

NARRATIVE: CASE EVENT DATE: 20221204
